FAERS Safety Report 11835257 (Version 9)
Quarter: 2016Q4

REPORT INFORMATION
  Report Type: Report from Study
  Country: CA (occurrence: CA)
  Receive Date: 20151215
  Receipt Date: 20161117
  Transmission Date: 20170206
  Serious: Yes (Other)
  Sender: FDA-Public Use
  Company Number: CA-ROCHE-1292796

PATIENT
  Age: 66 Year
  Sex: Male
  Weight: 122 kg

DRUGS (7)
  1. COVERSYL [Concomitant]
     Active Substance: PERINDOPRIL
  2. ARTHROTEC [Concomitant]
     Active Substance: DICLOFENAC SODIUM\MISOPROSTOL
  3. ACTEMRA [Suspect]
     Active Substance: TOCILIZUMAB
     Route: 042
     Dates: start: 20130418
  4. PLAQUENIL [Concomitant]
     Active Substance: HYDROXYCHLOROQUINE SULFATE
  5. CEPHALEXIN. [Suspect]
     Active Substance: CEPHALEXIN
     Indication: PRODUCT USED FOR UNKNOWN INDICATION
     Route: 065
  6. ACTEMRA [Suspect]
     Active Substance: TOCILIZUMAB
     Indication: RHEUMATOID ARTHRITIS
     Route: 042
     Dates: start: 2011
  7. METHOTREXATE. [Concomitant]
     Active Substance: METHOTREXATE

REACTIONS (18)
  - Lower respiratory tract congestion [Recovered/Resolved]
  - Rash [Recovered/Resolved]
  - Blood pressure fluctuation [Unknown]
  - Hypotension [Unknown]
  - Oxygen saturation decreased [Unknown]
  - Pruritus [Recovering/Resolving]
  - Peripheral swelling [Recovering/Resolving]
  - Weight increased [Not Recovered/Not Resolved]
  - Middle ear effusion [Unknown]
  - Rheumatoid arthritis [Unknown]
  - Body temperature decreased [Unknown]
  - Blood pressure increased [Unknown]
  - Blood pressure diastolic increased [Unknown]
  - Blood pressure systolic increased [Unknown]
  - Facial paralysis [Unknown]
  - Erythema [Recovered/Resolved]
  - Nasopharyngitis [Unknown]
  - Weight decreased [Not Recovered/Not Resolved]

NARRATIVE: CASE EVENT DATE: 201309
